FAERS Safety Report 22234454 (Version 1)
Quarter: 2023Q2

REPORT INFORMATION
  Report Type: Spontaneous
  Country: US (occurrence: None)
  Receive Date: 20230418
  Receipt Date: 20230418
  Transmission Date: 20230722
  Serious: Yes (Hospitalization)
  Sender: FDA-Public Use
  Company Number: None

PATIENT
  Age: 67 Year
  Sex: Female

DRUGS (1)
  1. XELODA [Suspect]
     Active Substance: CAPECITABINE
     Dosage: FREQUENCY : DAILY;?
     Route: 048

REACTIONS (8)
  - Dehydration [None]
  - Abdominal pain upper [None]
  - Decreased appetite [None]
  - Nausea [None]
  - Therapy interrupted [None]
  - Blister [None]
  - Erythema [None]
  - Back pain [None]

NARRATIVE: CASE EVENT DATE: 20230418
